FAERS Safety Report 17346142 (Version 1)
Quarter: 2020Q1

REPORT INFORMATION
  Report Type: Report from Study
  Country: US (occurrence: US)
  Receive Date: 20200129
  Receipt Date: 20200129
  Transmission Date: 20200409
  Serious: Yes (Hospitalization)
  Sender: FDA-Public Use
  Company Number: US-EXELIXIS-CABO-19022928

PATIENT
  Age: 60 Year
  Sex: Male

DRUGS (3)
  1. CABOMETYX [Suspect]
     Active Substance: CABOZANTINIB S-MALATE
     Indication: RENAL CANCER
     Dosage: 60 MG, QD (AT BEDTIME ON EMPTY STOMACH)
     Route: 048
     Dates: start: 20190709
  2. CABOMETYX [Suspect]
     Active Substance: CABOZANTINIB S-MALATE
     Dosage: 40 MG, QD (WITHOUT BEDTIME)
     Route: 048
     Dates: start: 20190807
  3. CABOMETYX [Suspect]
     Active Substance: CABOZANTINIB S-MALATE
     Dosage: 40 MG, QD
     Route: 048

REACTIONS (8)
  - Diarrhoea [Unknown]
  - Product dose omission [Unknown]
  - Decreased appetite [Unknown]
  - Blood pressure increased [Unknown]
  - Nausea [Unknown]
  - Early satiety [Recovered/Resolved]
  - Vomiting [Unknown]
  - Productive cough [Not Recovered/Not Resolved]

NARRATIVE: CASE EVENT DATE: 201907
